FAERS Safety Report 17723577 (Version 1)
Quarter: 2020Q2

REPORT INFORMATION
  Report Type: Spontaneous
  Country: US (occurrence: US)
  Receive Date: 20200429
  Receipt Date: 20200429
  Transmission Date: 20200714
  Serious: No
  Sender: FDA-Public Use
  Company Number: None

PATIENT
  Age: 54 Year
  Sex: Male
  Weight: 68.85 kg

DRUGS (3)
  1. OXALIPLATIN. [Suspect]
     Active Substance: OXALIPLATIN
     Indication: PANCREATIC CARCINOMA
     Dosage: ?          OTHER FREQUENCY:EVERY 2 WEEKS;?
     Route: 042
     Dates: start: 20191101, end: 20200424
  2. FOSAPREPITANT [Concomitant]
     Active Substance: FOSAPREPITANT
     Dates: start: 20191101, end: 20200424
  3. IRINOTECAN [Concomitant]
     Active Substance: IRINOTECAN
     Dates: start: 20191101, end: 20200424

REACTIONS (4)
  - Rash [None]
  - Pruritus [None]
  - Feeling hot [None]
  - Emotional distress [None]

NARRATIVE: CASE EVENT DATE: 20200424
